FAERS Safety Report 17253132 (Version 1)
Quarter: 2019Q4

REPORT INFORMATION
  Report Type: Spontaneous
  Country: US (occurrence: US)
  Receive Date: 20191216
  Receipt Date: 20191216
  Transmission Date: 20200122
  Serious: No
  Sender: FDA-Public Use
  Company Number: None

PATIENT
  Age: 84 Year
  Sex: Female
  Weight: 81.65 kg

DRUGS (41)
  1. BUSPIRONE [Concomitant]
     Active Substance: BUSPIRONE HYDROCHLORIDE
  2. RESPERIDIN [Concomitant]
  3. MONTELUKAST/SOP [Concomitant]
  4. ASPIRIN 81MG [Concomitant]
     Active Substance: ASPIRIN
  5. GINGKO/GINSENG [Concomitant]
  6. CURCUMIN [Concomitant]
     Active Substance: CURCUMIN
  7. D [Concomitant]
  8. KIUDS EYE DROPS [Concomitant]
  9. CLOPIDOGREL [Concomitant]
     Active Substance: CLOPIDOGREL BISULFATE
  10. HOPS. [Concomitant]
     Active Substance: HOPS
  11. COGNZYME Q-10 [Concomitant]
  12. PHOSPHATIDYLCHOLINE [Concomitant]
     Active Substance: LECITHIN
  13. PINE BARK [Concomitant]
  14. AZITHROMYCIN TABS [Concomitant]
  15. SULFAMETHOXAZOLE/TRIMETHOPRIM DS 800-160MG [Suspect]
     Active Substance: SULFAMETHOXAZOLE\TRIMETHOPRIM
     Indication: LOCALISED INFECTION
     Dosage: ?          QUANTITY:160 MG MILLIGRAM(S);?
     Route: 048
     Dates: start: 20190901, end: 20190902
  16. LOSARTAN/POTASS [Concomitant]
  17. METOPROLOL TART [Concomitant]
     Active Substance: METOPROLOL TARTRATE
  18. CALCIUM [Concomitant]
     Active Substance: CALCIUM
  19. MITE [Concomitant]
  20. PAPAYA TABS [Concomitant]
  21. TURMERIC [Concomitant]
     Active Substance: HERBALS\TURMERIC
  22. LOSOMINT [Concomitant]
  23. GRAPE SEED [Concomitant]
     Active Substance: HERBALS\VITIS VINIFERA SEED
  24. BUTCHER^S BROOM [Concomitant]
  25. LUTEIN [Concomitant]
     Active Substance: LUTEIN
  26. HEMORRHOID CREAM [Concomitant]
  27. ATORVASTATIN [Concomitant]
     Active Substance: ATORVASTATIN
  28. PASSION FLOWERS CHIAMO [Concomitant]
  29. RUTIN [Concomitant]
     Active Substance: RUTIN
  30. MUCUS RELIEVE DM [Concomitant]
  31. BIOTIN [Concomitant]
     Active Substance: BIOTIN
  32. VALERIAN [Concomitant]
     Active Substance: VALERIAN
  33. OXYBUTYNIN. [Concomitant]
     Active Substance: OXYBUTYNIN CHLORIDE
  34. GLUCOSAMINE [Concomitant]
     Active Substance: GLUCOSAMINE
  35. FLAXSEED [Concomitant]
     Active Substance: FLAX SEED
  36. VITAMIN E [Concomitant]
     Active Substance: .ALPHA.-TOCOPHEROL
  37. NEBULIZER ? ORAL INHALER [Concomitant]
  38. HYDROCHLOROTHIAZIDE. [Concomitant]
     Active Substance: HYDROCHLOROTHIAZIDE
  39. MELATONIN [Concomitant]
     Active Substance: MELATONIN
  40. DIGESTIVE ENZYMES PROBIOTICS [Concomitant]
  41. ASTAXANTHIN [Concomitant]
     Active Substance: ASTAXANTHIN

REACTIONS (3)
  - Rash [None]
  - Drug hypersensitivity [None]
  - Rash erythematous [None]

NARRATIVE: CASE EVENT DATE: 20190901
